FAERS Safety Report 16554789 (Version 1)
Quarter: 2019Q3

REPORT INFORMATION
  Report Type: Spontaneous
  Country: US (occurrence: US)
  Receive Date: 20190529
  Receipt Date: 20190529
  Transmission Date: 20191004
  Serious: No
  Sender: FDA-Public Use
  Company Number: None

PATIENT
  Age: 82 Year
  Sex: Male

DRUGS (1)
  1. EMPAGLIFLOZIN [Suspect]
     Active Substance: EMPAGLIFLOZIN
     Indication: DIABETES MELLITUS
     Dosage: ?          OTHER DOSE:12.5MG;?
     Route: 048
     Dates: start: 20190314, end: 20190522

REACTIONS (4)
  - Dehydration [None]
  - Blood urea increased [None]
  - Blood creatinine increased [None]
  - Pollakiuria [None]

NARRATIVE: CASE EVENT DATE: 20190522
